FAERS Safety Report 8611391-X (Version None)
Quarter: 2012Q3

REPORT INFORMATION
  Report Type: 
  Country: None (occurrence: None)
  Receive Date: 20120822
  Receipt Date: 20120821
  Transmission Date: 20120928
  Serious: Yes (Hospitalization, Other)
  Sender: FDA-Public Use
  Company Number: US-PFIZER INC-2012174431

PATIENT
  Age: 73 Year
  Sex: Male
  Weight: 94.8 kg

DRUGS (12)
  1. ATIVAN [Concomitant]
     Indication: AGITATION
  2. ZOLPIDEM [Concomitant]
     Dosage: 10 MG, NIGHTLY AS NEEDED
  3. CELEXA [Suspect]
     Dosage: UNK
  4. PLAVIX [Concomitant]
     Dosage: 75 MG, DAILY
     Route: 048
  5. AUGMENTIN '500' [Concomitant]
     Dosage: UNK
  6. ATIVAN [Concomitant]
     Indication: ANXIETY
     Dosage: 0.5 MG, EVERY 8 HOURS P.R.N
     Route: 048
  7. CITALOPRAM [Concomitant]
     Dosage: 20 UNK DAILY
  8. KEFLEX [Concomitant]
     Dosage: UNK
  9. CALCIUM CARBONATE [Concomitant]
     Dosage: 2 A DAY
  10. ATORVASTATIN CALCIUM [Concomitant]
     Dosage: 10 MG, DAILY
  11. INLYTA [Suspect]
     Indication: RENAL CELL CARCINOMA
     Dosage: 5 MG, 2X/DAY
     Route: 048
     Dates: start: 20120703, end: 20120716
  12. COMPAZINE [Concomitant]
     Dosage: 10 MG, EVERY 6 HOURS P. R.N
     Route: 048

REACTIONS (26)
  - ENCEPHALOPATHY [None]
  - WEIGHT DECREASED [None]
  - DIARRHOEA [None]
  - MUSCULOSKELETAL STIFFNESS [None]
  - APHASIA [None]
  - ANXIETY [None]
  - HEADACHE [None]
  - FATIGUE [None]
  - HYPOPHAGIA [None]
  - MENTAL STATUS CHANGES [None]
  - RESPIRATORY FAILURE [None]
  - GAIT DISTURBANCE [None]
  - DYSPNOEA EXERTIONAL [None]
  - RENAL IMPAIRMENT [None]
  - CHEST PAIN [None]
  - WHITE BLOOD CELL COUNT DECREASED [None]
  - SUBCUTANEOUS ABSCESS [None]
  - FURUNCLE [None]
  - AGITATION [None]
  - GENERAL PHYSICAL HEALTH DETERIORATION [None]
  - URINARY INCONTINENCE [None]
  - DEHYDRATION [None]
  - MALAISE [None]
  - PYREXIA [None]
  - CONFUSIONAL STATE [None]
  - HYPOMAGNESAEMIA [None]
